FAERS Safety Report 13901022 (Version 3)
Quarter: 2018Q1

REPORT INFORMATION
  Report Type: Spontaneous
  Country: ES (occurrence: ES)
  Receive Date: 20170824
  Receipt Date: 20180123
  Transmission Date: 20180508
  Serious: Yes (Hospitalization)
  Sender: FDA-Public Use
  Company Number: ES-SUN PHARMACEUTICAL INDUSTRIES LTD-2017R1-148057

PATIENT
  Age: 63 Year
  Sex: Male

DRUGS (5)
  1. QUETIAPINE. [Concomitant]
     Active Substance: QUETIAPINE
     Indication: MANIA
     Dosage: 100 MG, 1 / NIGHT
     Route: 065
  2. LITHIUM. [Suspect]
     Active Substance: LITHIUM
     Indication: MANIA
     Dosage: 400 MG, UNK
     Route: 065
  3. QUETIAPINE. [Concomitant]
     Active Substance: QUETIAPINE
     Dosage: 100 MG, 0.5/NIGHT
     Route: 065
  4. FLURAZEPAM [Concomitant]
     Active Substance: FLURAZEPAM\FLURAZEPAM HYDROCHLORIDE
     Indication: MANIA
     Dosage: 40 MG, 1/ NIGHT
     Route: 065
  5. PALIPERIDONE. [Concomitant]
     Active Substance: PALIPERIDONE
     Indication: MANIA
     Dosage: 6 MG, DAILY
     Route: 065

REACTIONS (5)
  - Renal impairment [Unknown]
  - Nervous system disorder [Unknown]
  - Urinary tract infection bacterial [Unknown]
  - Acinetobacter infection [Unknown]
  - Toxicity to various agents [Recovered/Resolved]
